FAERS Safety Report 6169747-3 (Version None)
Quarter: 2009Q2

REPORT INFORMATION
  Report Type: 
  Country: None (occurrence: None)
  Receive Date: 20090428
  Receipt Date: 20090420
  Transmission Date: 20091009
  Serious: Yes (Hospitalization)
  Sender: FDA-Public Use
  Company Number: GB-ROCHE-628136

PATIENT
  Sex: Female

DRUGS (6)
  1. CAPECITABINE [Suspect]
     Dosage: ADMINISTERED ORALLY FOR 21 DAYS FOLLOWED BY 7 DAYS REST
     Route: 048
     Dates: start: 20081118
  2. CAPECITABINE [Suspect]
     Dosage: RECEIVED OFF STUDY
     Route: 048
  3. BEVACIZUMAB [Suspect]
     Route: 042
     Dates: start: 20081118
  4. ERLOTINIB [Suspect]
     Route: 048
     Dates: start: 20081118
  5. GEMCITABINE [Suspect]
     Dosage: ADMINISTERED WEEKELY FOR 3 WEEKS FOLLOWED BY 1 WEEKS REST.
     Route: 042
     Dates: start: 20081118
  6. GEMCITABINE [Suspect]
     Dosage: RECEIVED OFF STUDY
     Route: 042

REACTIONS (1)
  - GASTROINTESTINAL OBSTRUCTION [None]
